FAERS Safety Report 6538121-X (Version None)
Quarter: 2010Q1

REPORT INFORMATION
  Report Type: 
  Country: None (occurrence: None)
  Receive Date: 20100114
  Receipt Date: 20100111
  Transmission Date: 20100710
  Serious: Yes (Other)
  Sender: FDA-Public Use
  Company Number: FR-PFIZER INC-2010003733

PATIENT
  Age: 73 Year
  Sex: Male

DRUGS (7)
  1. XALATAN [Suspect]
     Dosage: UNK
     Dates: start: 20080701
  2. ALFUZOSIN [Concomitant]
  3. PRAVASTATIN [Concomitant]
  4. LANSOPRAZOLE [Concomitant]
  5. AERIUS [Concomitant]
  6. PLAVIX [Concomitant]
  7. COVERSYL [Concomitant]
     Indication: HYPERTENSION

REACTIONS (1)
  - HYPERTENSION [None]
